FAERS Safety Report 5314217-5 (Version None)
Quarter: 2007Q2

REPORT INFORMATION
  Report Type: 
  Country: None (occurrence: None)
  Receive Date: 20070426
  Receipt Date: 20070416
  Transmission Date: 20071010
  Serious: Yes (Hospitalization)
  Sender: FDA-Public Use
  Company Number: CHNY2007DE01674

PATIENT
  Sex: 0

DRUGS (1)
  1. FENISTIL PENCIVIR BEILIPPENHERPES (NCH) PENCICLOVIR) CREAM [Suspect]
     Dosage: TOPICAL
     Route: 061
     Dates: start: 20070301, end: 20070301

REACTIONS (4)
  - LIP SWELLING [None]
  - PRURITUS [None]
  - RASH GENERALISED [None]
  - URTICARIA [None]
